FAERS Safety Report 24904323 (Version 2)
Quarter: 2025Q1

REPORT INFORMATION
  Report Type: Spontaneous
  Country: IT (occurrence: IT)
  Receive Date: 20250130
  Receipt Date: 20250210
  Transmission Date: 20250408
  Serious: Yes (Hospitalization)
  Sender: Haleon PLC
  Company Number: IT-MINISAL02-1018446

PATIENT
  Sex: Male
  Weight: 75 kg

DRUGS (1)
  1. VOLTAREN [Suspect]
     Active Substance: DICLOFENAC SODIUM
     Indication: Fracture
     Route: 061
     Dates: start: 20241216, end: 20241217

REACTIONS (3)
  - Pain [Unknown]
  - Inflammation [Unknown]
  - Burning sensation [Unknown]

NARRATIVE: CASE EVENT DATE: 20241216
